FAERS Safety Report 11196839 (Version 1)
Quarter: 2015Q2

REPORT INFORMATION
  Report Type: Spontaneous
  Country: US (occurrence: US)
  Receive Date: 20150617
  Receipt Date: 20150617
  Transmission Date: 20150821
  Serious: Yes (Other)
  Sender: FDA-Public Use
  Company Number: US-LPDUSPRD-20150444

PATIENT
  Age: 55 Year
  Sex: Male
  Weight: 67.5 kg

DRUGS (6)
  1. OPTIFLUX 160 NRE DIALYZER [Concomitant]
  2. ACID CONCENTRATE/BICARBONATE [Concomitant]
  3. DOXERCALCIFEROL. [Concomitant]
     Active Substance: DOXERCALCIFEROL
     Dosage: DOSE NOT PROVIDED
     Route: 065
  4. 2008T HEMODIALYSIS MACHINE [Concomitant]
  5. VENOFER [Suspect]
     Active Substance: IRON SUCROSE
     Dosage: 100 MG/QTREATMENT
     Route: 042
     Dates: start: 20150514
  6. MIRCERA [Concomitant]
     Active Substance: METHOXY POLYETHYLENE GLYCOL-EPOETIN BETA
     Dosage: DOSE NOT PROVIDED
     Route: 065

REACTIONS (1)
  - Haemorrhage [Unknown]

NARRATIVE: CASE EVENT DATE: 20150514
